FAERS Safety Report 5729317-5 (Version None)
Quarter: 2008Q2

REPORT INFORMATION
  Report Type: 
  Country: None (occurrence: None)
  Receive Date: 20080430
  Receipt Date: 20080208
  Transmission Date: 20081010
  Serious: No
  Sender: FDA-Public Use
  Company Number: 2008PV034187

PATIENT
  Age: 48 Year
  Weight: 81.6475 kg

DRUGS (5)
  1. SYMLINPEN 60 (PRAMLINTIDE ACETATE) PEN-INJECTOR [Suspect]
     Indication: TYPE 1 DIABETES MELLITUS
     Dosage: 60 MCG;TID;SC
     Route: 058
     Dates: start: 20080209
  2. SYMLIN [Suspect]
     Indication: TYPE 1 DIABETES MELLITUS
     Dosage: 30 MCG;TID;SC : 15 MCG;TID;SC : 15 MCG;TID;SC
     Route: 058
     Dates: start: 20071201, end: 20071201
  3. SYMLIN [Suspect]
     Indication: TYPE 1 DIABETES MELLITUS
     Dosage: 30 MCG;TID;SC : 15 MCG;TID;SC : 15 MCG;TID;SC
     Route: 058
     Dates: start: 20080101, end: 20080101
  4. SYMLIN [Suspect]
     Indication: TYPE 1 DIABETES MELLITUS
     Dosage: 30 MCG;TID;SC : 15 MCG;TID;SC : 15 MCG;TID;SC
     Route: 058
     Dates: start: 20080101, end: 20080208
  5. HUMALOG [Concomitant]

REACTIONS (3)
  - BLOOD GLUCOSE DECREASED [None]
  - BLOOD GLUCOSE INCREASED [None]
  - DRUG PRESCRIBING ERROR [None]
